FAERS Safety Report 4807905-8 (Version None)
Quarter: 2005Q4

REPORT INFORMATION
  Report Type: 
  Country: None (occurrence: None)
  Receive Date: 20051020
  Receipt Date: 20051006
  Transmission Date: 20060501
  Serious: Yes (Hospitalization)
  Sender: FDA-Public Use
  Company Number: 2005-01984

PATIENT
  Age: 78 Year
  Sex: Female
  Weight: 90 kg

DRUGS (4)
  1. VELCADE [Suspect]
     Indication: MULTIPLE MYELOMA
     Dosage: SEE IMAGE
     Route: 042
     Dates: start: 20050325, end: 20050906
  2. CORTANCYL [Concomitant]
  3. ZOMETA [Concomitant]
  4. ANTIHYPERTENSIVES [Concomitant]

REACTIONS (6)
  - APHTHOUS STOMATITIS [None]
  - DERMATITIS BULLOUS [None]
  - PRURITUS [None]
  - RASH MACULO-PAPULAR [None]
  - THROMBOCYTOPENIA [None]
  - TOXIC SKIN ERUPTION [None]
